FAERS Safety Report 6345091-6 (Version None)
Quarter: 2009Q3

REPORT INFORMATION
  Report Type: 
  Country: None (occurrence: None)
  Receive Date: 20090909
  Receipt Date: 20070529
  Transmission Date: 20100115
  Serious: Yes (Other)
  Sender: FDA-Public Use
  Company Number: US-ASTRAZENECA-2006UW07985

PATIENT
  Age: 19657 Day
  Sex: Female
  Weight: 132.9 kg

DRUGS (11)
  1. SEROQUEL [Suspect]
     Indication: DEPRESSION
     Route: 048
     Dates: start: 20030601, end: 20060101
  2. SEROQUEL [Suspect]
     Route: 048
     Dates: start: 20030710
  3. GEODON [Concomitant]
  4. PROZAC [Concomitant]
     Indication: DEPRESSION
     Route: 048
     Dates: start: 20010514
  5. RISPERDAL [Concomitant]
     Dates: start: 20030820
  6. DESIPRAMINE HCL [Concomitant]
     Dates: start: 19991019
  7. REGLAN [Concomitant]
     Dates: start: 20010514
  8. NEURONTIN [Concomitant]
     Indication: NEURALGIA
     Dosage: 300 MG TO 3600 MG
     Dates: start: 20020110
  9. ELAVIL [Concomitant]
     Indication: SLEEP DISORDER
     Dates: start: 20020110
  10. PREMARIN [Concomitant]
     Indication: HOT FLUSH
     Route: 048
     Dates: start: 19960702
  11. PROVERA [Concomitant]
     Indication: HOT FLUSH
     Route: 048
     Dates: start: 19960702

REACTIONS (6)
  - DIABETES MELLITUS [None]
  - DIABETIC EYE DISEASE [None]
  - DIABETIC RETINOPATHY [None]
  - GLUCOSE TOLERANCE IMPAIRED [None]
  - GLYCOSURIA [None]
  - TYPE 2 DIABETES MELLITUS [None]
